FAERS Safety Report 24413567 (Version 1)
Quarter: 2024Q4

REPORT INFORMATION
  Report Type: Spontaneous
  Country: BR (occurrence: BR)
  Receive Date: 20241008
  Receipt Date: 20241008
  Transmission Date: 20250115
  Serious: Yes (Other)
  Sender: NOVARTIS
  Company Number: BR-002147023-NVSC2024BR196644

PATIENT
  Age: 42 Year

DRUGS (3)
  1. SECUKINUMAB [Suspect]
     Active Substance: SECUKINUMAB
     Indication: Psoriasis
     Dosage: UNK
     Route: 065
  2. ISONIAZID [Suspect]
     Active Substance: ISONIAZID
     Indication: Product used for unknown indication
     Dosage: UNK (900)
     Route: 065
  3. RIFAPENTINE [Suspect]
     Active Substance: RIFAPENTINE
     Indication: Product used for unknown indication
     Dosage: UNK, QW (900)
     Route: 065

REACTIONS (18)
  - Poisoning [Unknown]
  - Nausea [Unknown]
  - Thirst [Recovered/Resolved]
  - Dehydration [Unknown]
  - Chest discomfort [Unknown]
  - Catarrh [Unknown]
  - Drug ineffective [Unknown]
  - Decreased appetite [Unknown]
  - Pyrexia [Recovered/Resolved]
  - Pain [Unknown]
  - Chills [Recovered/Resolved]
  - Influenza [Unknown]
  - Brain fog [Unknown]
  - Fatigue [Unknown]
  - Nasopharyngitis [Unknown]
  - Influenza like illness [Recovered/Resolved]
  - Feeling abnormal [Unknown]
  - Depression [Unknown]
